FAERS Safety Report 5098916-9 (Version None)
Quarter: 2006Q3

REPORT INFORMATION
  Report Type: 
  Country: None (occurrence: None)
  Receive Date: 20060905
  Receipt Date: 20060820
  Transmission Date: 20061208
  Serious: Yes (Death, Hospitalization)
  Sender: FDA-Public Use
  Company Number: A-US2006-12922

PATIENT
  Age: 73 Year
  Sex: Male

DRUGS (9)
  1. TRACLEER [Suspect]
     Indication: PULMONARY FIBROSIS
     Dosage: 62.5 MG, BID,
     Dates: start: 20060702, end: 20060712
  2. OXYGEN (OXYGEN) [Concomitant]
  3. PREDNISONE TAB [Concomitant]
  4. LOPRESSOR [Concomitant]
  5. COUMADIN [Concomitant]
  6. ZOCOR [Concomitant]
  7. GLIPIZIDE [Concomitant]
  8. OTC-NAC [Concomitant]
  9. LEXAPRO [Concomitant]

REACTIONS (10)
  - CYST [None]
  - DIZZINESS [None]
  - DYSPNOEA [None]
  - FATIGUE [None]
  - GAIT DISTURBANCE [None]
  - GENERAL PHYSICAL HEALTH DETERIORATION [None]
  - IDIOPATHIC PULMONARY FIBROSIS [None]
  - PALPITATIONS [None]
  - PULMONARY HYPERTENSION [None]
  - RESPIRATORY DISTRESS [None]
